FAERS Safety Report 19040987 (Version 1)
Quarter: 2021Q1

REPORT INFORMATION
  Report Type: Spontaneous
  Country: US (occurrence: US)
  Receive Date: 20210322
  Receipt Date: 20210322
  Transmission Date: 20210420
  Serious: Yes (Death, Hospitalization)
  Sender: FDA-Public Use
  Company Number: US-SAMSUNG BIOEPIS-SB-2021-06980

PATIENT
  Age: 60 Year
  Sex: Male

DRUGS (2)
  1. INFLIXIMAB [Suspect]
     Active Substance: INFLIXIMAB
     Indication: PULMONARY ALVEOLAR HAEMORRHAGE
     Dosage: UNKNOWN
     Route: 065
  2. NIVOLUMAB [Suspect]
     Active Substance: NIVOLUMAB
     Indication: BLADDER CANCER
     Dosage: UNKNOWN
     Route: 065

REACTIONS (5)
  - Drug ineffective for unapproved indication [Unknown]
  - Pulmonary alveolar haemorrhage [Fatal]
  - Off label use [Unknown]
  - Respiratory failure [Fatal]
  - Pneumonitis [Fatal]
